FAERS Safety Report 7359976-5 (Version None)
Quarter: 2011Q1

REPORT INFORMATION
  Report Type: 
  Country: None (occurrence: None)
  Receive Date: 20110317
  Receipt Date: 20110308
  Transmission Date: 20110831
  Serious: Yes (Hospitalization, Disabling)
  Sender: FDA-Public Use
  Company Number: US-MERCK-1012USA01310

PATIENT
  Age: 50 Year
  Sex: Female

DRUGS (5)
  1. FOSAMAX [Suspect]
     Indication: HYSTERECTOMY
     Route: 048
     Dates: start: 20021001, end: 20051001
  2. FOSAMAX PLUS D [Suspect]
     Indication: HYSTERECTOMY
     Route: 048
     Dates: start: 20051001, end: 20070801
  3. SIMVASTATIN [Concomitant]
     Indication: BLOOD CHOLESTEROL INCREASED
     Route: 048
     Dates: start: 20000101
  4. FOSAMAX [Suspect]
     Indication: OSTEOPOROSIS
     Route: 048
     Dates: start: 20021001, end: 20051001
  5. FOSAMAX PLUS D [Suspect]
     Indication: OSTEOPOROSIS
     Route: 048
     Dates: start: 20051001, end: 20070801

REACTIONS (4)
  - DIABETES MELLITUS [None]
  - LOW TURNOVER OSTEOPATHY [None]
  - FEMUR FRACTURE [None]
  - FALL [None]
